FAERS Safety Report 6125199-0 (Version None)
Quarter: 2009Q1

REPORT INFORMATION
  Report Type: 
  Country: None (occurrence: None)
  Receive Date: 20090318
  Receipt Date: 20090303
  Transmission Date: 20090719
  Serious: Yes (Hospitalization)
  Sender: FDA-Public Use
  Company Number: 2009000689

PATIENT
  Age: 65 Year
  Sex: Male
  Weight: 85 kg

DRUGS (14)
  1. ERLOTINIB (ERLOTINIB) (TABLET) (ERLOTINIB) [Suspect]
     Indication: GLIOBLASTOMA MULTIFORME
     Dosage: 150 MG, QD, ORAL
     Route: 048
     Dates: start: 20080926
  2. BEVACIZUMAB (INJECTION FOR INFUSION) [Suspect]
     Indication: GLIOBLASTOMA MULTIFORME
     Dosage: 10 MG/KG, Q2W, INTAVENOUS
     Route: 042
     Dates: start: 20080926
  3. TEMODAR [Suspect]
     Indication: GLIOBLASTOMA MULTIFORME
     Dosage: 200 MG/M2, ORAL
     Route: 048
     Dates: start: 20080926
  4. LIPITOR [Concomitant]
  5. RINITIDINE [Concomitant]
  6. COLACE (DOCUSATE SODIUM) [Concomitant]
  7. LEVOTHYROXINE SODIUM [Concomitant]
  8. ATIVAN [Concomitant]
  9. IMODIUM [Concomitant]
  10. ZOFRAN [Concomitant]
  11. LISINOPRIL [Concomitant]
  12. ZOLOFT [Concomitant]
  13. COUMADIN [Concomitant]
  14. TOPROL-XL [Concomitant]

REACTIONS (7)
  - DEHYDRATION [None]
  - HYDROCEPHALUS [None]
  - HYPERTENSION [None]
  - NAUSEA [None]
  - NEOPLASM PROGRESSION [None]
  - TREATMENT NONCOMPLIANCE [None]
  - VOMITING [None]
